FAERS Safety Report 15619091 (Version 1)
Quarter: 2018Q4

REPORT INFORMATION
  Report Type: Spontaneous
  Country: IT (occurrence: IT)
  Receive Date: 20181114
  Receipt Date: 20181114
  Transmission Date: 20190205
  Serious: Yes (Hospitalization)
  Sender: FDA-Public Use
  Company Number: IT-SA-2018SA308395

PATIENT
  Age: 81 Year
  Sex: Female

DRUGS (1)
  1. STILNOX [Suspect]
     Active Substance: ZOLPIDEM TARTRATE
     Dosage: UNK UNK, UNK
     Route: 065

REACTIONS (1)
  - Poisoning [Recovering/Resolving]

NARRATIVE: CASE EVENT DATE: 20180314
